FAERS Safety Report 5919491-X (Version None)
Quarter: 2008Q4

REPORT INFORMATION
  Report Type: 
  Country: None (occurrence: None)
  Receive Date: 20081015
  Receipt Date: 20081009
  Transmission Date: 20090506
  Serious: Yes (Death)
  Sender: FDA-Public Use
  Company Number: GB-AVENTIS-200819669GDDC

PATIENT
  Sex: Male

DRUGS (1)
  1. TAXOTERE [Suspect]
     Indication: PROSTATE CANCER STAGE IV

REACTIONS (4)
  - HAEMORRHAGE [None]
  - NEUTROPENIA [None]
  - NEUTROPENIC INFECTION [None]
  - THROMBOCYTOPENIA [None]
